FAERS Safety Report 4645948-8 (Version None)
Quarter: 2005Q2

REPORT INFORMATION
  Report Type: 
  Country: None (occurrence: None)
  Receive Date: 20050422
  Receipt Date: 20050422
  Transmission Date: 20051028
  Serious: Yes (Death)
  Sender: FDA-Public Use
  Company Number: None

PATIENT
  Age: 76 Year
  Sex: Female
  Weight: 67.1324 kg

DRUGS (5)
  1. TNKASE [Suspect]
     Indication: PULMONARY EMBOLISM
     Dosage: 5 MG INFUSED DIRECTLY TO CLOT SITE IN UPPER LOBE
     Dates: start: 20050106
  2. WARFARIN [Concomitant]
  3. SOLU-MEDROL [Concomitant]
  4. TEMAZEPAM [Concomitant]
  5. ARGATROBAN [Concomitant]

REACTIONS (3)
  - POST PROCEDURAL COMPLICATION [None]
  - PULMONARY EMBOLISM [None]
  - PULMONARY HAEMORRHAGE [None]
